FAERS Safety Report 17193301 (Version 8)
Quarter: 2020Q3

REPORT INFORMATION
  Report Type: Report from Study
  Country: US (occurrence: US)
  Receive Date: 20191223
  Receipt Date: 20200827
  Transmission Date: 20201102
  Serious: Yes (Other)
  Sender: FDA-Public Use
  Company Number: NVSC2019US077372

PATIENT
  Sex: Male

DRUGS (2)
  1. COSENTYX [Suspect]
     Active Substance: SECUKINUMAB
     Indication: PSORIASIS
     Dosage: 300 MG, Q4W
     Route: 058
     Dates: start: 201910
  2. COSENTYX [Suspect]
     Active Substance: SECUKINUMAB
     Indication: PSORIATIC ARTHROPATHY
     Dosage: 300 MG ONCE WEEKLY FOR 5 WEEKS THEN 300 MG Q4W
     Route: 058
     Dates: start: 20191016

REACTIONS (9)
  - Haemorrhage [Unknown]
  - Arthralgia [Recovering/Resolving]
  - Scratch [Unknown]
  - Inappropriate schedule of product administration [Unknown]
  - Therapeutic product effect incomplete [Unknown]
  - Pain in extremity [Unknown]
  - Pruritus [Unknown]
  - Skin disorder [Unknown]
  - Condition aggravated [Unknown]
